FAERS Safety Report 13410771 (Version 2)
Quarter: 2017Q4

REPORT INFORMATION
  Report Type: Spontaneous
  Country: US (occurrence: US)
  Receive Date: 20170406
  Receipt Date: 20171123
  Transmission Date: 20180320
  Serious: No
  Sender: FDA-Public Use
  Company Number: US-JNJFOC-20170307809

PATIENT
  Sex: Male

DRUGS (18)
  1. RISPERDAL [Suspect]
     Active Substance: RISPERIDONE
     Indication: PARANOIA
     Route: 048
     Dates: start: 20080201
  2. RISPERDAL [Suspect]
     Active Substance: RISPERIDONE
     Indication: PARANOIA
     Dosage: 1 MG Q AM, 2 MG Q PM
     Route: 048
     Dates: start: 20080409, end: 20091022
  3. RISPERDAL [Suspect]
     Active Substance: RISPERIDONE
     Indication: DRUG THERAPY
     Dosage: 1 MG Q AM, 2 MG Q PM
     Route: 048
     Dates: start: 20080409, end: 20091022
  4. RISPERDAL [Suspect]
     Active Substance: RISPERIDONE
     Indication: ATTENTION DEFICIT/HYPERACTIVITY DISORDER
     Route: 048
     Dates: start: 20110208
  5. RISPERDAL [Suspect]
     Active Substance: RISPERIDONE
     Indication: ATTENTION DEFICIT/HYPERACTIVITY DISORDER
     Route: 048
     Dates: start: 20080201
  6. RISPERDAL [Suspect]
     Active Substance: RISPERIDONE
     Indication: AFFECTIVE DISORDER
     Route: 048
     Dates: start: 20080222
  7. RISPERIDONE. [Suspect]
     Active Substance: RISPERIDONE
     Indication: AFFECTIVE DISORDER
     Route: 048
     Dates: start: 20091124
  8. RISPERDAL [Suspect]
     Active Substance: RISPERIDONE
     Indication: PARANOIA
     Route: 048
     Dates: start: 20110208
  9. RISPERDAL [Suspect]
     Active Substance: RISPERIDONE
     Indication: PARANOIA
     Route: 048
     Dates: start: 20080222
  10. RISPERDAL [Suspect]
     Active Substance: RISPERIDONE
     Indication: AFFECTIVE DISORDER
     Route: 048
     Dates: start: 20110208
  11. RISPERDAL [Suspect]
     Active Substance: RISPERIDONE
     Indication: DRUG THERAPY
     Route: 048
     Dates: start: 20080201
  12. RISPERDAL [Suspect]
     Active Substance: RISPERIDONE
     Indication: ATTENTION DEFICIT/HYPERACTIVITY DISORDER
     Route: 048
     Dates: start: 20080222
  13. RISPERDAL [Suspect]
     Active Substance: RISPERIDONE
     Indication: ATTENTION DEFICIT/HYPERACTIVITY DISORDER
     Dosage: 1 MG Q AM, 2 MG Q PM
     Route: 048
     Dates: start: 20080409, end: 20091022
  14. RISPERIDONE. [Suspect]
     Active Substance: RISPERIDONE
     Indication: ATTENTION DEFICIT/HYPERACTIVITY DISORDER
     Route: 048
     Dates: start: 20091124
  15. RISPERDAL [Suspect]
     Active Substance: RISPERIDONE
     Indication: DRUG THERAPY
     Route: 048
     Dates: start: 20080222
  16. RISPERDAL [Suspect]
     Active Substance: RISPERIDONE
     Indication: DRUG THERAPY
     Route: 048
     Dates: start: 20110208
  17. RISPERDAL [Suspect]
     Active Substance: RISPERIDONE
     Indication: AFFECTIVE DISORDER
     Route: 048
     Dates: start: 20080201
  18. RISPERDAL [Suspect]
     Active Substance: RISPERIDONE
     Indication: AFFECTIVE DISORDER
     Dosage: 1 MG Q AM, 2 MG Q PM
     Route: 048
     Dates: start: 20080409, end: 20091022

REACTIONS (2)
  - Gynaecomastia [Unknown]
  - Emotional disorder [Unknown]
